FAERS Safety Report 20082717 (Version 3)
Quarter: 2022Q2

REPORT INFORMATION
  Report Type: Report from Study
  Country: CA (occurrence: CA)
  Receive Date: 20211117
  Receipt Date: 20220511
  Transmission Date: 20220721
  Serious: Yes (Other)
  Sender: FDA-Public Use
  Company Number: CA-PFIZER INC-202101511663

PATIENT
  Age: 62 Year
  Sex: Male

DRUGS (23)
  1. AMLODIPINE BESYLATE [Suspect]
     Active Substance: AMLODIPINE BESYLATE
     Dosage: 5 MG, 1X/DAY
     Route: 048
  2. ATORVASTATIN CALCIUM [Suspect]
     Active Substance: ATORVASTATIN CALCIUM
     Dosage: 80 MG, 1X/DAY
     Route: 065
  3. SOMAVERT [Suspect]
     Active Substance: PEGVISOMANT
     Dosage: 10 MG, 1X/DAY
     Route: 058
  4. SOMAVERT [Suspect]
     Active Substance: PEGVISOMANT
     Dosage: 20 MG, 1X/DAY
     Route: 065
     Dates: start: 2019
  5. LOSARTAN [Suspect]
     Active Substance: LOSARTAN
     Dosage: 100 MG, 1X/DAY
     Route: 065
  6. SANDOSTATIN [Suspect]
     Active Substance: OCTREOTIDE ACETATE
     Indication: Acromegaly
     Dosage: 20 MG, MONTHLY
     Route: 030
     Dates: start: 20170111
  7. SANDOSTATIN [Suspect]
     Active Substance: OCTREOTIDE ACETATE
     Dosage: 20 MG, MONTHLY
     Route: 030
  8. SANDOSTATIN [Suspect]
     Active Substance: OCTREOTIDE ACETATE
     Dosage: 20 MG, MONTHLY
     Route: 058
     Dates: start: 20171110
  9. SANDOSTATIN [Suspect]
     Active Substance: OCTREOTIDE ACETATE
     Indication: Acromegaly
     Dosage: 20 MG, MONTHLY
     Route: 058
     Dates: start: 201702
  10. CANDESARTAN [Suspect]
     Active Substance: CANDESARTAN
     Dosage: UNK
     Route: 065
  11. CANDESARTAN [Suspect]
     Active Substance: CANDESARTAN
     Dosage: 16 MG, 1X/DAY
     Route: 065
  12. ASPIRIN [Concomitant]
     Active Substance: ASPIRIN
     Dosage: 50 MG
     Route: 048
  13. ASPIRIN [Concomitant]
     Active Substance: ASPIRIN
     Dosage: 80 MG, DAILY
     Route: 048
  14. AMLODIPINE [Concomitant]
     Active Substance: AMLODIPINE BESYLATE
     Dosage: 5 MG, 1X/DAY
     Route: 048
  15. ASPIRIN [Concomitant]
     Active Substance: ASPIRIN
     Dosage: 80 MG, 1X/DAY
     Route: 048
  16. ATORVASTATIN CALCIUM [Concomitant]
     Active Substance: ATORVASTATIN CALCIUM
     Dosage: 80 MG, 1X/DAY
     Route: 065
  17. CANDESARTAN [Concomitant]
     Active Substance: CANDESARTAN
     Dosage: UNK, 1X/DAY
     Route: 065
  18. CANDESARTAN [Concomitant]
     Active Substance: CANDESARTAN
     Dosage: 16 MG, 1X/DAY
     Route: 065
  19. CANDESARTAN [Concomitant]
     Active Substance: CANDESARTAN
     Dosage: 16 MG, 1X/DAY
     Route: 048
  20. PLAVIX [Concomitant]
     Active Substance: CLOPIDOGREL BISULFATE
     Dosage: 75 MG
     Route: 048
     Dates: start: 2018
  21. PEGVISOMANT [Concomitant]
     Active Substance: PEGVISOMANT
     Dosage: 10 MG, 1X/DAY
     Route: 058
  22. ATACAND [Concomitant]
     Active Substance: CANDESARTAN CILEXETIL
     Dosage: 16 MG, 1X/DAY
     Route: 048
  23. ASPIRIN [Concomitant]
     Active Substance: ASPIRIN

REACTIONS (22)
  - Cellulitis [Recovered/Resolved]
  - Injection site oedema [Unknown]
  - Injection site pain [Unknown]
  - Peripheral swelling [Unknown]
  - Wound infection [Recovered/Resolved]
  - Blood pressure increased [Not Recovered/Not Resolved]
  - Weight decreased [Unknown]
  - Pain [Unknown]
  - Arterial occlusive disease [Unknown]
  - Blood growth hormone increased [Unknown]
  - Chest discomfort [Unknown]
  - Fall [Recovering/Resolving]
  - Gait disturbance [Unknown]
  - Heart rate decreased [Not Recovered/Not Resolved]
  - Insulin-like growth factor increased [Unknown]
  - Limb injury [Recovered/Resolved]
  - Polyp [Unknown]
  - Tendonitis [Unknown]
  - Vital functions abnormal [Unknown]
  - Bradycardia [Unknown]
  - Blood cholesterol abnormal [Unknown]
  - Incorrect route of product administration [Unknown]

NARRATIVE: CASE EVENT DATE: 20170111
